FAERS Safety Report 5390884-5 (Version None)
Quarter: 2007Q3

REPORT INFORMATION
  Report Type: 
  Country: None (occurrence: None)
  Receive Date: 20070716
  Receipt Date: 20070709
  Transmission Date: 20080115
  Serious: Yes (Other)
  Sender: FDA-Public Use
  Company Number: 2007EN000060

PATIENT
  Age: 52 Year
  Sex: Male

DRUGS (5)
  1. ABELCET [Suspect]
     Indication: MUCORMYCOSIS
     Dosage: SEE IMAGE
     Route: 042
     Dates: start: 20070616, end: 20070616
  2. ABELCET [Suspect]
     Indication: MUCORMYCOSIS
     Dosage: SEE IMAGE
     Route: 042
     Dates: start: 20070624, end: 20070624
  3. ABELCET [Suspect]
     Indication: MUCORMYCOSIS
     Dosage: SEE IMAGE
     Route: 042
     Dates: start: 20070627, end: 20070627
  4. ABELCET [Suspect]
     Indication: MUCORMYCOSIS
     Dosage: SEE IMAGE
     Route: 042
     Dates: start: 20070704
  5. ABELCET [Suspect]

REACTIONS (6)
  - HYPERTENSION [None]
  - RENAL FAILURE [None]
  - TACHYCARDIA [None]
  - TACHYPNOEA [None]
  - THERAPEUTIC PRODUCT CONTAMINATION [None]
  - VENTRICULAR EXTRASYSTOLES [None]
